FAERS Safety Report 13306199 (Version 1)
Quarter: 2017Q1

REPORT INFORMATION
  Report Type: Spontaneous
  Country: CA (occurrence: CA)
  Receive Date: 20170308
  Receipt Date: 20170308
  Transmission Date: 20170428
  Serious: Yes (Life-Threatening, Hospitalization)
  Sender: FDA-Public Use
  Company Number: CA-LPDUSPRD-20170217

PATIENT
  Age: 25 Year
  Sex: Female

DRUGS (10)
  1. UNKNOWN CONTRACEPTIVE [Concomitant]
     Active Substance: UNSPECIFIED INGREDIENT
     Dosage: DOSE UNKNOWN
     Route: 048
  2. AMOXICILLIN. [Concomitant]
     Active Substance: AMOXICILLIN
     Dosage: 250 MG BID
     Route: 065
  3. ATORVASTATIN [Concomitant]
     Active Substance: ATORVASTATIN
     Dosage: 20 MG DAILY
     Route: 065
  4. HYDROMORPHONE [Concomitant]
     Active Substance: HYDROMORPHONE
     Dosage: TITRATED
     Route: 048
     Dates: start: 2010
  5. VENOFER [Suspect]
     Active Substance: IRON SUCROSE
     Dosage: 500 MG IN 250 NS
     Route: 042
     Dates: start: 20170213, end: 20170213
  6. PROGRAF/PREDNISONE [Concomitant]
     Dosage: TITRATED
     Route: 065
     Dates: start: 1997
  7. FOSINOPRIL/PROPRANOLOL [Concomitant]
     Dosage: TITRATED
     Route: 065
  8. BOTOX [Concomitant]
     Active Substance: ONABOTULINUMTOXINA
     Dosage: EVERY 4 MONTHS
     Route: 051
     Dates: start: 2010
  9. VITAMIN D [Concomitant]
     Active Substance: CHOLECALCIFEROL
     Dosage: 1000 UNITS DAILY
     Route: 065
  10. PANTOPRAZOLE [Concomitant]
     Active Substance: PANTOPRAZOLE SODIUM
     Dosage: 40 MG BID
     Route: 065

REACTIONS (11)
  - Hyperhidrosis [Unknown]
  - Pallor [Unknown]
  - Lethargy [Unknown]
  - Diarrhoea [Unknown]
  - Feeling abnormal [Unknown]
  - Presyncope [Unknown]
  - Pain in extremity [Unknown]
  - Hypotension [Unknown]
  - Abdominal pain [Unknown]
  - Vomiting [Unknown]
  - Retching [Unknown]

NARRATIVE: CASE EVENT DATE: 20170213
